FAERS Safety Report 7912106-0 (Version None)
Quarter: 2011Q4

REPORT INFORMATION
  Report Type: 
  Country: None (occurrence: None)
  Receive Date: 20111114
  Receipt Date: 20111104
  Transmission Date: 20120403
  Serious: Yes (Hospitalization, Other)
  Sender: FDA-Public Use
  Company Number: NL-AMGEN-NLDNI2011034109

PATIENT
  Age: 58 Year
  Sex: Female

DRUGS (6)
  1. NEULASTA [Suspect]
     Indication: BREAST CANCER
     Dosage: 0.6 ML, Q3WK
     Route: 058
     Dates: start: 20110702
  2. ONDANSETRON [Concomitant]
  3. CYCLOPHOSPHAMIDE [Concomitant]
     Indication: BREAST CANCER
     Dosage: 870 MG, UNK
     Route: 042
     Dates: start: 20110701
  4. DEXAMETHASONE [Concomitant]
  5. TAXOTERE [Concomitant]
     Indication: BREAST CANCER
     Dosage: 131 MG, QD
     Route: 042
     Dates: start: 20110701
  6. ADRIAMYCIN PFS [Concomitant]
     Indication: BREAST CANCER
     Dosage: 87 MG, QD
     Route: 042
     Dates: start: 20110701

REACTIONS (3)
  - PYREXIA [None]
  - ESCHERICHIA URINARY TRACT INFECTION [None]
  - STAPHYLOCOCCAL INFECTION [None]
